FAERS Safety Report 12253675 (Version 1)
Quarter: 2016Q2

REPORT INFORMATION
  Report Type: Spontaneous
  Country: ES (occurrence: ES)
  Receive Date: 20160411
  Receipt Date: 20160411
  Transmission Date: 20160815
  Serious: Yes (Other)
  Sender: FDA-Public Use
  Company Number: ES-ELI_LILLY_AND_COMPANY-ES201601000735

PATIENT
  Age: 57 Year
  Sex: Female
  Weight: 68 kg

DRUGS (10)
  1. OMEPRAZOLE. [Concomitant]
     Active Substance: OMEPRAZOLE
     Indication: PRODUCT USED FOR UNKNOWN INDICATION
     Dosage: 20 MG, 24 H
     Route: 065
     Dates: start: 201509
  2. PRIMPERAN [Concomitant]
     Active Substance: METOCLOPRAMIDE HYDROCHLORIDE
     Indication: NAUSEA
     Dosage: UNK, 8 H
     Route: 065
     Dates: start: 201509
  3. DEPRAX                             /00447702/ [Concomitant]
     Active Substance: TRAZODONE HYDROCHLORIDE
     Indication: SLEEP DISORDER
     Dosage: UNK, 24 H
     Route: 065
     Dates: start: 201509
  4. CYMBALTA [Suspect]
     Active Substance: DULOXETINE HYDROCHLORIDE
     Indication: DEPRESSION
     Dosage: UNK, QD
     Route: 048
     Dates: start: 201509
  5. ENANTYUM [Concomitant]
     Active Substance: DEXKETOPROFEN TROMETAMOL
     Indication: PAIN
     Dosage: 25 MG, 8H IF NECESSARY
     Route: 065
     Dates: start: 201509
  6. HIDROSALURETIL [Concomitant]
     Active Substance: HYDROCHLOROTHIAZIDE
     Indication: OEDEMA
     Dosage: UNK, 48 72H IF NECESSARY
     Route: 065
     Dates: start: 201509
  7. FENTANILO                          /00174601/ [Concomitant]
     Indication: PAIN
     Dosage: 100 UG, 72 H
     Route: 065
     Dates: start: 201509
  8. ABSTRAL [Concomitant]
     Active Substance: FENTANYL CITRATE
     Indication: PAIN
     Dosage: UNK, IF NECESSARY
     Route: 065
     Dates: start: 201509
  9. FORTECORTIN                        /00016001/ [Concomitant]
     Active Substance: DEXAMETHASONE
     Indication: PRODUCT USED FOR UNKNOWN INDICATION
     Dosage: 2 MG, 24 H
     Route: 065
  10. ACFOL [Concomitant]
     Active Substance: FOLIC ACID
     Indication: PRODUCT USED FOR UNKNOWN INDICATION
     Dosage: UNK, 24 H
     Route: 065
     Dates: start: 201509

REACTIONS (2)
  - Empyema [Not Recovered/Not Resolved]
  - Procedural pain [Unknown]

NARRATIVE: CASE EVENT DATE: 20151230
